FAERS Safety Report 17426864 (Version 6)
Quarter: 2020Q2

REPORT INFORMATION
  Report Type: Report from Study
  Country: CA (occurrence: CA)
  Receive Date: 20200217
  Receipt Date: 20200609
  Transmission Date: 20200713
  Serious: Yes (Hospitalization, Other)
  Sender: FDA-Public Use
  Company Number: PHHY2013CA108220

PATIENT
  Age: 57 Year
  Sex: Male

DRUGS (2)
  1. SANDOSTATIN LAR DEPOT [Suspect]
     Active Substance: OCTREOTIDE ACETATE
     Indication: NEUROENDOCRINE TUMOUR
     Dosage: 20 MG, QMO (EVERY 4 WEEKS)
     Route: 030
     Dates: start: 20130827
  2. SANDOSTATIN LAR DEPOT [Suspect]
     Active Substance: OCTREOTIDE ACETATE
     Dosage: 30 MG, QMO (EVERY 4 WEEKS)
     Route: 030
     Dates: start: 20170206

REACTIONS (40)
  - Gastrointestinal motility disorder [Unknown]
  - Blood count abnormal [Unknown]
  - Abdominal discomfort [Recovering/Resolving]
  - Weight decreased [Not Recovered/Not Resolved]
  - Malignant neoplasm progression [Unknown]
  - Portal vein occlusion [Unknown]
  - Arthralgia [Unknown]
  - Dry mouth [Unknown]
  - Asthenia [Unknown]
  - Sepsis [Unknown]
  - Diarrhoea [Unknown]
  - Haemoglobin decreased [Unknown]
  - Skin atrophy [Unknown]
  - Nausea [Unknown]
  - Heart rate increased [Unknown]
  - Coccydynia [Unknown]
  - Hypertension [Unknown]
  - Bile duct obstruction [Unknown]
  - Nasopharyngitis [Unknown]
  - Faeces discoloured [Unknown]
  - Frequent bowel movements [Recovering/Resolving]
  - Abdominal distension [Unknown]
  - Liver abscess [Recovering/Resolving]
  - Hypotension [Recovering/Resolving]
  - Blood iron decreased [Unknown]
  - Rash erythematous [Unknown]
  - Abdominal pain [Unknown]
  - Neuroendocrine tumour [Unknown]
  - Cough [Unknown]
  - Gout [Unknown]
  - Dyspnoea [Not Recovered/Not Resolved]
  - Abdominal rigidity [Unknown]
  - Jaundice [Not Recovered/Not Resolved]
  - Rash pruritic [Unknown]
  - Malaise [Recovering/Resolving]
  - Pain [Unknown]
  - Dry skin [Unknown]
  - Fatigue [Unknown]
  - Rash [Unknown]
  - Dizziness [Recovered/Resolved]

NARRATIVE: CASE EVENT DATE: 2015
